FAERS Safety Report 12447566 (Version 1)
Quarter: 2016Q2

REPORT INFORMATION
  Report Type: Spontaneous
  Country: US (occurrence: US)
  Receive Date: 20160608
  Receipt Date: 20160608
  Transmission Date: 20160815
  Serious: No
  Sender: FDA-Public Use
  Company Number: US-ENDO PHARMACEUTICALS INC.-2015-003170

PATIENT
  Age: 39 Year
  Sex: Female

DRUGS (1)
  1. OXYMORPHONE HYDROCHLORIDE. [Suspect]
     Active Substance: OXYMORPHONE HYDROCHLORIDE
     Indication: PAIN
     Route: 065

REACTIONS (1)
  - Drug effect decreased [Not Recovered/Not Resolved]
